FAERS Safety Report 9415760 (Version 1)
Quarter: 2013Q3

REPORT INFORMATION
  Report Type: Spontaneous
  Country: AU (occurrence: AU)
  Receive Date: 20130724
  Receipt Date: 20130724
  Transmission Date: 20140515
  Serious: Yes (Hospitalization)
  Sender: FDA-Public Use
  Company Number: AU-AMGEN-AUSSP2013037197

PATIENT
  Age: 54 Year
  Sex: Female
  Weight: 46 kg

DRUGS (4)
  1. NEULASTA [Suspect]
     Indication: PRODUCT USED FOR UNKNOWN INDICATION
     Dosage: 6 MG, ONCE
     Route: 058
     Dates: start: 20130227, end: 20130502
  2. FLUOROURACIL [Suspect]
     Indication: BREAST CANCER
     Dosage: 675 MG, Q3WK
     Route: 042
     Dates: start: 20130226, end: 20130410
  3. EPIRUBICIN [Suspect]
     Indication: BREAST CANCER
     Dosage: 138 MG, Q3WK
     Route: 042
     Dates: start: 20130226, end: 20130410
  4. CYCLOPHOSPHAMIDE [Suspect]
     Indication: BREAST CANCER
     Dosage: 690 MG, Q3WK
     Route: 042
     Dates: start: 20130226, end: 20130410

REACTIONS (10)
  - Hypothermia [Recovered/Resolved]
  - Chills [Recovered/Resolved]
  - Febrile neutropenia [Recovered/Resolved]
  - Thrombocytopenia [Unknown]
  - Hypokalaemia [Recovered/Resolved]
  - Vomiting [Recovered/Resolved]
  - Dizziness [Recovered/Resolved]
  - Nausea [Recovered/Resolved]
  - Pyrexia [Unknown]
  - Drug ineffective [Unknown]
